FAERS Safety Report 6674175-8 (Version None)
Quarter: 2010Q2

REPORT INFORMATION
  Report Type: 
  Country: None (occurrence: None)
  Receive Date: 20100407
  Receipt Date: 20100324
  Transmission Date: 20101027
  Serious: Yes (Death)
  Sender: FDA-Public Use
  Company Number: 2009EU001051

PATIENT
  Age: 58 Year
  Sex: Male

DRUGS (3)
  1. TACROLIMUS [Suspect]
     Dosage: ORAL
     Route: 048
     Dates: end: 20090310
  2. CELLCEPT [Suspect]
     Dosage: ORAL
     Route: 048
     Dates: end: 20090310
  3. PREDNISONE TAB [Suspect]
     Dosage: ORAL
     Route: 048
     Dates: end: 20090310

REACTIONS (2)
  - INTESTINAL GANGRENE [None]
  - LARGE INTESTINE PERFORATION [None]
